FAERS Safety Report 11592093 (Version 2)
Quarter: 2015Q4

REPORT INFORMATION
  Report Type: Spontaneous
  Country: US (occurrence: US)
  Receive Date: 20151005
  Receipt Date: 20151116
  Transmission Date: 20160304
  Serious: Yes (Death, Other)
  Sender: FDA-Public Use
  Company Number: US-PFIZER INC-2015317536

PATIENT
  Age: 72 Year
  Sex: Female
  Weight: 56 kg

DRUGS (4)
  1. GABAPENTIN. [Suspect]
     Active Substance: GABAPENTIN
     Dosage: 200 MG, 1X/DAY
     Route: 048
  2. ATIVAN [Concomitant]
     Active Substance: LORAZEPAM
     Dosage: 0.5 THREE TIMES A DAY
     Route: 048
  3. TRAZODONE [Concomitant]
     Active Substance: TRAZODONE HYDROCHLORIDE
     Dosage: 50MG 1/2 A TABLET AN HOUR BEFORE SHE TAKES THE GABAPENTIN
  4. GABAPENTIN. [Suspect]
     Active Substance: GABAPENTIN
     Indication: SLEEP DISORDER
     Dosage: 300 MG, ONCE DAILY AT NIGHT
     Route: 048
     Dates: start: 201507

REACTIONS (24)
  - Decreased appetite [Not Recovered/Not Resolved]
  - Bacterial test positive [Unknown]
  - Lymphadenopathy [Unknown]
  - Feeding disorder [Not Recovered/Not Resolved]
  - Urine output decreased [Recovering/Resolving]
  - Urinary sediment present [Unknown]
  - Product use issue [Not Recovered/Not Resolved]
  - Throat tightness [Unknown]
  - Urine leukocyte esterase positive [Unknown]
  - Malaise [Unknown]
  - Feeling abnormal [Not Recovered/Not Resolved]
  - Epistaxis [Not Recovered/Not Resolved]
  - Abdominal discomfort [Not Recovered/Not Resolved]
  - Blood creatinine increased [Unknown]
  - Glomerular filtration rate decreased [Unknown]
  - Urine abnormality [Unknown]
  - Fluid retention [Recovering/Resolving]
  - Mean cell haemoglobin concentration decreased [Unknown]
  - Intentional product misuse [Not Recovered/Not Resolved]
  - Abdominal distension [Unknown]
  - Completed suicide [Fatal]
  - Blood urine [Unknown]
  - White blood cells urine [Unknown]
  - Discomfort [Unknown]

NARRATIVE: CASE EVENT DATE: 201507
